FAERS Safety Report 8503131-X (Version None)
Quarter: 2012Q3

REPORT INFORMATION
  Report Type: 
  Country: None (occurrence: None)
  Receive Date: 20120711
  Receipt Date: 20120709
  Transmission Date: 20120928
  Serious: No
  Sender: FDA-Public Use
  Company Number: US-PFIZER INC-2012164620

PATIENT
  Sex: Female
  Weight: 80.726 kg

DRUGS (3)
  1. HYDROCODONE [Concomitant]
     Dosage: UNK
  2. CELEBREX [Suspect]
     Indication: INFLAMMATION
     Dosage: 200 MG, 1X/DAY
     Route: 048
  3. CELEBREX [Suspect]
     Indication: ARTHRITIS

REACTIONS (1)
  - ALOPECIA [None]
